FAERS Safety Report 7260665-6 (Version None)
Quarter: 2011Q1

REPORT INFORMATION
  Report Type: 
  Country: None (occurrence: None)
  Receive Date: 20110130
  Receipt Date: 20101122
  Transmission Date: 20110831
  Serious: No
  Sender: FDA-Public Use
  Company Number: US-ABBOTT-10P-163-0687015-00

PATIENT
  Sex: Female
  Weight: 70.824 kg

DRUGS (2)
  1. ARAVA [Concomitant]
     Indication: RHEUMATOID ARTHRITIS
  2. HUMIRA [Suspect]
     Indication: RHEUMATOID ARTHRITIS
     Dates: start: 20060901

REACTIONS (6)
  - JOINT SWELLING [None]
  - RED BLOOD CELL SEDIMENTATION RATE INCREASED [None]
  - ASTHENIA [None]
  - MUSCULAR WEAKNESS [None]
  - VITAMIN D DECREASED [None]
  - ARTHRALGIA [None]
